FAERS Safety Report 24584299 (Version 1)
Quarter: 2024Q4

REPORT INFORMATION
  Report Type: Spontaneous
  Country: US (occurrence: None)
  Receive Date: 20241105
  Receipt Date: 20241105
  Transmission Date: 20250115
  Serious: No
  Sender: Public
  Company Number: None

PATIENT
  Age: 60 Year
  Sex: Female
  Weight: 60.33 kg

DRUGS (3)
  1. GAVILYTE G [Suspect]
     Active Substance: POLYETHYLENE GLYCOL 3350\POTASSIUM CHLORIDE\SODIUM BICARBONATE\SODIUM CHLORIDE\SODIUM SULFATE
     Indication: Colonoscopy
     Dosage: OTHER QUANTITY : 4 LITERS;?OTHER FREQUENCY : TAKE ALL ;?OTHER ROUTE : DRINK;?
     Route: 048
     Dates: start: 20240814, end: 20240814
  2. Dulava Inhaler [Concomitant]
  3. Excedrin [Concomitant]

REACTIONS (4)
  - Headache [None]
  - Nausea [None]
  - Feeling of body temperature change [None]
  - Hallucination [None]

NARRATIVE: CASE EVENT DATE: 20240814
